FAERS Safety Report 7841447-0 (Version None)
Quarter: 2011Q4

REPORT INFORMATION
  Report Type: 
  Country: None (occurrence: None)
  Receive Date: 20111025
  Receipt Date: 20111014
  Transmission Date: 20120403
  Serious: Yes (Other)
  Sender: FDA-Public Use
  Company Number: PT-JNJFOC-20111006962

PATIENT
  Age: 29 Year
  Sex: Female
  Weight: 60 kg

DRUGS (3)
  1. REMICADE [Suspect]
     Route: 042
     Dates: start: 20111014
  2. REMICADE [Suspect]
     Indication: ANKYLOSING SPONDYLITIS
     Route: 042
     Dates: start: 20100715
  3. HYDROXYZINE [Concomitant]
     Indication: PREMEDICATION
     Route: 048

REACTIONS (4)
  - CHEST PAIN [None]
  - THROAT TIGHTNESS [None]
  - INFUSION RELATED REACTION [None]
  - PALPITATIONS [None]
